FAERS Safety Report 23415208 (Version 1)
Quarter: 2024Q1

REPORT INFORMATION
  Report Type: Spontaneous
  Country: FR (occurrence: FR)
  Receive Date: 20240118
  Receipt Date: 20240118
  Transmission Date: 20240410
  Serious: Yes (Life-Threatening)
  Sender: FDA-Public Use
  Company Number: FR-AFSSAPS-PV2023000903

PATIENT
  Age: 34 Year
  Sex: Female

DRUGS (5)
  1. MIDAZOLAM [Suspect]
     Active Substance: MIDAZOLAM
     Indication: Intentional overdose
     Dosage: 50 MILLIGRAM, IN TOTAL
     Route: 048
     Dates: start: 20230911, end: 20230911
  2. REPAGLINIDE [Suspect]
     Active Substance: REPAGLINIDE
     Indication: Intentional overdose
     Dosage: 18 MILLIGRAM, IN TOTAL, 9 TABS OF 2 MG
     Route: 048
     Dates: start: 20230911, end: 20230911
  3. NEFOPAM [Suspect]
     Active Substance: NEFOPAM
     Indication: Intentional overdose
     Dosage: 20 MILLIGRAM, IN TOTAL
     Route: 048
     Dates: start: 20230911, end: 20230911
  4. RIVOTRIL [Suspect]
     Active Substance: CLONAZEPAM
     Indication: Intentional overdose
     Dosage: 2 MILLIGRAM, IN TOTAL
     Route: 048
     Dates: start: 20230911, end: 20230911
  5. LOXAPINE [Suspect]
     Active Substance: LOXAPINE
     Indication: Intentional overdose
     Dosage: 250 MILLIGRAM, IN TOTAL, 5 TABS OF 50 MG
     Route: 048
     Dates: start: 20230911, end: 20230911

REACTIONS (2)
  - Hypoglycaemia [Recovered/Resolved]
  - Depressed level of consciousness [Recovering/Resolving]

NARRATIVE: CASE EVENT DATE: 20230911
